FAERS Safety Report 10414100 (Version 2)
Quarter: 2014Q3

REPORT INFORMATION
  Report Type: Spontaneous
  Country: US (occurrence: US)
  Receive Date: 20140827
  Receipt Date: 20140827
  Transmission Date: 20150326
  Serious: No
  Sender: FDA-Public Use
  Company Number: US-ASTRAZENECA-2013SE76003

PATIENT
  Age: 78 Year
  Sex: Male
  Weight: 97.5 kg

DRUGS (12)
  1. TOBRAMYCIN [Concomitant]
     Active Substance: TOBRAMYCIN
     Indication: BLINDNESS
  2. DONEPEZIL [Concomitant]
     Active Substance: DONEPEZIL
     Indication: DEMENTIA
  3. LORATADINE. [Concomitant]
     Active Substance: LORATADINE
     Indication: MULTIPLE ALLERGIES
  4. ALBUTEROL. [Concomitant]
     Active Substance: ALBUTEROL
     Indication: EMPHYSEMA
  5. SIMVASTATIN. [Concomitant]
     Active Substance: SIMVASTATIN
     Indication: BLOOD CHOLESTEROL ABNORMAL
  6. DONEPEZIL [Concomitant]
     Active Substance: DONEPEZIL
     Indication: AMNESIA
  7. SYMBICORT [Suspect]
     Active Substance: BUDESONIDE\FORMOTEROL FUMARATE DIHYDRATE
     Indication: RESPIRATORY DISORDER
     Dosage: 160/4.5 , 2 PUFFS BID
     Route: 055
     Dates: start: 2009
  8. IPRATROPIUM BROMIDE / IPRATROPIUM BROMIDE NASAL SPRAY 0.03 PERCENT [Concomitant]
     Indication: EMPHYSEMA
  9. IPRATROPIUM BROMIDE / IPRATROPIUM BROMIDE NASAL SPRAY 0.03 PERCENT [Concomitant]
     Indication: EMPHYSEMA
     Dosage: 0.03 % , 2 SPRAYS, TID
     Route: 045
  10. SYMBICORT [Suspect]
     Active Substance: BUDESONIDE\FORMOTEROL FUMARATE DIHYDRATE
     Indication: EMPHYSEMA
     Dosage: 160/4.5 , 2 PUFFS BID
     Route: 055
     Dates: start: 2009
  11. SYMBICORT [Suspect]
     Active Substance: BUDESONIDE\FORMOTEROL FUMARATE DIHYDRATE
     Indication: COUGH
     Dosage: 160/4.5 , 2 PUFFS BID
     Route: 055
     Dates: start: 2009
  12. SYNTHROID [Concomitant]
     Active Substance: LEVOTHYROXINE SODIUM
     Indication: HYPOTHYROIDISM

REACTIONS (7)
  - Dementia [Unknown]
  - Amnesia [Unknown]
  - Rash pruritic [Not Recovered/Not Resolved]
  - Adverse event [Unknown]
  - Increased tendency to bruise [Unknown]
  - Off label use [Unknown]
  - Asthma [Unknown]
